FAERS Safety Report 8887426 (Version 3)
Quarter: 2012Q4

REPORT INFORMATION
  Report Type: 
  Country: JP (occurrence: JP)
  Receive Date: 20121105
  Receipt Date: 20121112
  Transmission Date: 20130627
  Serious: Yes (Other)
  Sender: FDA-Public Use
  Company Number: JP-BAYER-2012-114560

PATIENT
  Age: 78 Year
  Sex: Male

DRUGS (3)
  1. ACETYLSALICYLIC ACID({=100 MG) [Suspect]
     Route: 048
  2. CLOPIDOGREL SULFATE [Suspect]
     Dosage: UNK
     Route: 048
  3. UNFRACTIONATED HEPARIN [Suspect]
     Dosage: UNK
     Route: 040

REACTIONS (1)
  - Haemobilia [None]
